FAERS Safety Report 6575305-9 (Version None)
Quarter: 2010Q1

REPORT INFORMATION
  Report Type: 
  Country: None (occurrence: None)
  Receive Date: 20100209
  Receipt Date: 20100127
  Transmission Date: 20100710
  Serious: Yes (Hospitalization)
  Sender: FDA-Public Use
  Company Number: FR-ROCHE-682218

PATIENT
  Sex: Male

DRUGS (1)
  1. METHOXY POLYETHYLENE GLYCOL-EPOETIN BETA [Suspect]
     Dosage: FORM: PRE-FILLED SYRINGE
     Route: 042

REACTIONS (1)
  - SEPSIS [None]
